FAERS Safety Report 6906784-2 (Version None)
Quarter: 2010Q3

REPORT INFORMATION
  Report Type: 
  Country: None (occurrence: None)
  Receive Date: 20100802
  Receipt Date: 20100730
  Transmission Date: 20110219
  Serious: Yes (Other)
  Sender: FDA-Public Use
  Company Number: ADR-001

PATIENT

DRUGS (1)
  1. OXYGEN USP, 99.5%; AIR PRODUCTS / 010018 [Suspect]
     Dates: start: 20100713

REACTIONS (2)
  - GRAND MAL CONVULSION [None]
  - HEARING IMPAIRED [None]
